FAERS Safety Report 9234341 (Version 1)
Quarter: 2013Q2

REPORT INFORMATION
  Report Type: Spontaneous
  Country: CA (occurrence: CA)
  Receive Date: 20130416
  Receipt Date: 20130416
  Transmission Date: 20140414
  Serious: Yes (Other)
  Sender: FDA-Public Use
  Company Number: PHHY2013CA035496

PATIENT
  Age: 66 Year
  Sex: Female
  Weight: 54 kg

DRUGS (6)
  1. LETROZOLE SANDOZ [Suspect]
     Indication: METASTASIS
     Dosage: 1 DF, DAILY
     Route: 048
     Dates: start: 20130223
  2. SYNTHROID [Concomitant]
  3. ALPRAZOLAM [Concomitant]
     Dosage: 0.5 DF, (HALF TABLET) AT BED TIME
     Route: 048
  4. VITAMIN D//COLECALCIFEROL [Concomitant]
     Dosage: 2 DF, PER DAY
     Route: 048
  5. CALCIUM [Concomitant]
     Dosage: 1 DF, PER DAY
     Route: 048
  6. CHLOROPHYLLIN [Concomitant]
     Dosage: 2 DF, PER DAY
     Route: 048

REACTIONS (2)
  - Chest discomfort [Not Recovered/Not Resolved]
  - Fatigue [Not Recovered/Not Resolved]
